FAERS Safety Report 4959693-2 (Version None)
Quarter: 2006Q1

REPORT INFORMATION
  Report Type: 
  Country: None (occurrence: None)
  Receive Date: 20060328
  Receipt Date: 20060314
  Transmission Date: 20060701
  Serious: Yes (Hospitalization, Disabling)
  Sender: FDA-Public Use
  Company Number: 2006035832

PATIENT
  Sex: Female
  Weight: 72.5755 kg

DRUGS (2)
  1. DETROL LA [Suspect]
     Indication: HYPERTONIC BLADDER
     Dosage: 4 MG (4 MG, 1 IN 1 D), ORAL
     Route: 048
  2. ANTIHYPERTENSIVES [Concomitant]

REACTIONS (8)
  - ARTHRITIS [None]
  - CONDITION AGGRAVATED [None]
  - DEPRESSION [None]
  - DIFFICULTY IN WALKING [None]
  - MYALGIA [None]
  - NOCTURIA [None]
  - PAIN [None]
  - URINARY INCONTINENCE [None]
